FAERS Safety Report 16240693 (Version 2)
Quarter: 2019Q4

REPORT INFORMATION
  Report Type: Spontaneous
  Country: US (occurrence: US)
  Receive Date: 20190425
  Receipt Date: 20191029
  Transmission Date: 20200122
  Serious: Yes (Other)
  Sender: FDA-Public Use
  Company Number: US-ASTRAZENECA-2018SF65552

PATIENT
  Age: 24295 Day
  Sex: Male

DRUGS (49)
  1. PRILOSEC [Concomitant]
     Active Substance: OMEPRAZOLE MAGNESIUM
  2. NAPROXEN. [Concomitant]
     Active Substance: NAPROXEN
  3. METOPROLOL. [Concomitant]
     Active Substance: METOPROLOL
  4. DUONEB [Concomitant]
     Active Substance: ALBUTEROL SULFATE\IPRATROPIUM BROMIDE
  5. VENTOLIN [Concomitant]
     Active Substance: ALBUTEROL SULFATE
  6. HYDRALAZINE [Concomitant]
     Active Substance: HYDRALAZINE HYDROCHLORIDE
  7. ACETAMINOPHEN. [Concomitant]
     Active Substance: ACETAMINOPHEN
  8. SERTRALINE [Concomitant]
     Active Substance: SERTRALINE HYDROCHLORIDE
  9. ATORVASTATIN [Concomitant]
     Active Substance: ATORVASTATIN
  10. FLOMAX [Concomitant]
     Active Substance: TAMSULOSIN HYDROCHLORIDE
  11. FUROSEMIDE. [Concomitant]
     Active Substance: FUROSEMIDE
  12. METOPROLOL. [Concomitant]
     Active Substance: METOPROLOL
  13. LIPITOR [Concomitant]
     Active Substance: ATORVASTATIN CALCIUM
  14. AMLODIPINE [Concomitant]
     Active Substance: AMLODIPINE BESYLATE
  15. SERTRALINE [Concomitant]
     Active Substance: SERTRALINE HYDROCHLORIDE
  16. ZYVOX [Concomitant]
     Active Substance: LINEZOLID
  17. DOXYCYCLINE HYCLATE. [Concomitant]
     Active Substance: DOXYCYCLINE HYCLATE
  18. NEXIUM [Suspect]
     Active Substance: ESOMEPRAZOLE MAGNESIUM
     Route: 048
  19. NAPROXEN. [Concomitant]
     Active Substance: NAPROXEN
  20. TORSEMIDE. [Concomitant]
     Active Substance: TORSEMIDE
  21. LISINOPRIL. [Concomitant]
     Active Substance: LISINOPRIL
  22. PROTONIX [Concomitant]
     Active Substance: PANTOPRAZOLE SODIUM
  23. GABAPENTIN. [Concomitant]
     Active Substance: GABAPENTIN
  24. METOPROLOL SUCCINATE. [Concomitant]
     Active Substance: METOPROLOL SUCCINATE
  25. VOLTAREN [Concomitant]
     Active Substance: DICLOFENAC SODIUM
  26. PANTOPRAZOLE SODIUM. [Concomitant]
     Active Substance: PANTOPRAZOLE SODIUM
  27. NYSTATIN. [Concomitant]
     Active Substance: NYSTATIN
  28. ALBUTEROL. [Concomitant]
     Active Substance: ALBUTEROL
  29. METOPROLOL. [Concomitant]
     Active Substance: METOPROLOL
  30. INSULIN [Concomitant]
     Active Substance: INSULIN NOS
  31. BACLOFEN. [Concomitant]
     Active Substance: BACLOFEN
  32. HYDRALAZINE [Concomitant]
     Active Substance: HYDRALAZINE HYDROCHLORIDE
  33. WARFARIN [Concomitant]
     Active Substance: WARFARIN
  34. MUPIROCIN. [Concomitant]
     Active Substance: MUPIROCIN
  35. LOVENOX [Concomitant]
     Active Substance: ENOXAPARIN SODIUM
  36. NITROGLYCERIN. [Concomitant]
     Active Substance: NITROGLYCERIN
  37. NOVOLOG [Concomitant]
     Active Substance: INSULIN ASPART
  38. PLAVIX [Concomitant]
     Active Substance: CLOPIDOGREL BISULFATE
  39. LISINOPRIL. [Concomitant]
     Active Substance: LISINOPRIL
  40. FLOMAX [Concomitant]
     Active Substance: TAMSULOSIN HYDROCHLORIDE
  41. AMLODIPINE [Concomitant]
     Active Substance: AMLODIPINE BESYLATE
  42. BACLOFEN. [Concomitant]
     Active Substance: BACLOFEN
  43. LOPERAMIDE [Concomitant]
     Active Substance: LOPERAMIDE
  44. DIGOXIN. [Concomitant]
     Active Substance: DIGOXIN
  45. LANTUS [Concomitant]
     Active Substance: INSULIN GLARGINE
  46. LASIX [Concomitant]
     Active Substance: FUROSEMIDE
  47. PROAIR HFA [Concomitant]
     Active Substance: ALBUTEROL SULFATE
  48. METOPROLOL. [Concomitant]
     Active Substance: METOPROLOL
  49. SERTRALINE [Concomitant]
     Active Substance: SERTRALINE HYDROCHLORIDE

REACTIONS (5)
  - Chronic kidney disease [Unknown]
  - End stage renal disease [Unknown]
  - Rebound acid hypersecretion [Unknown]
  - Renal failure [Unknown]
  - Acute kidney injury [Unknown]

NARRATIVE: CASE EVENT DATE: 20151118
